FAERS Safety Report 24200623 (Version 1)
Quarter: 2024Q3

REPORT INFORMATION
  Report Type: Spontaneous
  Country: US (occurrence: US)
  Receive Date: 20240812
  Receipt Date: 20240812
  Transmission Date: 20241016
  Serious: No
  Sender: ANI
  Company Number: US-ANIPHARMA-2024-US-035990

PATIENT
  Age: 57 Year
  Sex: Male
  Weight: 98.43 kg

DRUGS (7)
  1. CORTICOTROPIN [Suspect]
     Active Substance: CORTICOTROPIN
     Indication: Gout
     Dosage: 80 UNITS 2 TIMES A WEEK
     Route: 058
     Dates: start: 202406
  2. INDOMETHACIN [Concomitant]
     Active Substance: INDOMETHACIN
  3. VITAMIN D [Concomitant]
     Active Substance: VITAMIN D NOS
  4. ALLOPURINOL [Concomitant]
     Active Substance: ALLOPURINOL
  5. KRYSTEXXA [Concomitant]
     Active Substance: PEGLOTICASE
  6. COLCHICINE [Concomitant]
     Active Substance: COLCHICINE
  7. MYCOPHENOLIC ACID [Concomitant]
     Active Substance: MYCOPHENOLIC ACID

REACTIONS (1)
  - Drug ineffective [Unknown]
